FAERS Safety Report 4599140-6 (Version None)
Quarter: 2005Q1

REPORT INFORMATION
  Report Type: 
  Country: None (occurrence: None)
  Receive Date: 20050302
  Receipt Date: 20050223
  Transmission Date: 20050727
  Serious: Yes (Hospitalization)
  Sender: FDA-Public Use
  Company Number: 2005-00680

PATIENT
  Age: 36 Year
  Sex: Male

DRUGS (5)
  1. LORAZEPAM [Suspect]
     Dosage: 0.5-4.5 MG, DAILY, ORAL
     Route: 048
  2. DOXEPIN (WATSON LABORATORIES) (DOXEWPIN HYDROCHLORIDE) CAPSULE [Suspect]
     Dosage: 100 50MG, DAILY, ORAL
     Route: 048
  3. QUETIAPINE FUMARATE [Suspect]
     Indication: SCHIZOPHRENIA
     Dosage: 750 MG, DAILY, ORAL
     Route: 048
  4. PANTOPRAZOLE (PANTOPRAZOLE) [Suspect]
     Dosage: 40, ORAL
     Route: 048
  5. OFLOXACINE [Concomitant]

REACTIONS (2)
  - DRUG INTERACTION [None]
  - DRUG LEVEL INCREASED [None]
